FAERS Safety Report 8497146-8 (Version None)
Quarter: 2012Q3

REPORT INFORMATION
  Report Type: 
  Country: None (occurrence: None)
  Receive Date: 20120709
  Receipt Date: 20120605
  Transmission Date: 20120928
  Serious: No
  Sender: FDA-Public Use
  Company Number: US-AMGEN-USASP2012035101

PATIENT
  Age: 60 Year
  Sex: Female

DRUGS (1)
  1. ENBREL [Suspect]
     Indication: PSORIASIS
     Dosage: 50 MG, UNK
     Dates: start: 20120531, end: 20120101

REACTIONS (5)
  - SWELLING FACE [None]
  - PRURITUS [None]
  - ERYTHEMA [None]
  - SKIN EXFOLIATION [None]
  - SUNBURN [None]
